FAERS Safety Report 25957761 (Version 1)
Quarter: 2025Q4

REPORT INFORMATION
  Report Type: Spontaneous
  Country: BR (occurrence: BR)
  Receive Date: 20251024
  Receipt Date: 20251024
  Transmission Date: 20260117
  Serious: Yes (Other)
  Sender: ROCHE
  Company Number: BR-ROCHE-10000412479

PATIENT
  Age: 57 Year
  Sex: Male

DRUGS (6)
  1. ATEZOLIZUMAB [Suspect]
     Active Substance: ATEZOLIZUMAB
     Indication: Hepatic cancer
     Route: 065
     Dates: start: 20220708, end: 20220819
  2. ATEZOLIZUMAB [Suspect]
     Active Substance: ATEZOLIZUMAB
     Route: 065
     Dates: start: 20230113, end: 20230526
  3. ATEZOLIZUMAB [Suspect]
     Active Substance: ATEZOLIZUMAB
     Route: 065
     Dates: start: 20220912, end: 20221223
  4. BEVACIZUMAB [Suspect]
     Active Substance: BEVACIZUMAB
     Indication: Hepatic cancer
     Route: 065
     Dates: start: 20220708, end: 20220819
  5. BEVACIZUMAB [Suspect]
     Active Substance: BEVACIZUMAB
     Route: 065
     Dates: start: 20220912, end: 20221223
  6. BEVACIZUMAB [Suspect]
     Active Substance: BEVACIZUMAB
     Route: 065
     Dates: start: 20230113, end: 20230526

REACTIONS (6)
  - Tumour thrombosis [Unknown]
  - Varices oesophageal [Unknown]
  - Vein disorder [Unknown]
  - Lymphadenopathy [Unknown]
  - Gastric antral vascular ectasia [Unknown]
  - Liver disorder [Unknown]

NARRATIVE: CASE EVENT DATE: 20220912
